FAERS Safety Report 25239697 (Version 1)
Quarter: 2025Q2

REPORT INFORMATION
  Report Type: Spontaneous
  Country: US (occurrence: US)
  Receive Date: 20250425
  Receipt Date: 20250425
  Transmission Date: 20250717
  Serious: No
  Sender: LUNDBECK
  Company Number: US-LUNDBECK-DKLU4013411

PATIENT
  Age: 3 Year
  Sex: Female

DRUGS (2)
  1. CLOBAZAM [Suspect]
     Active Substance: CLOBAZAM
     Indication: Seizure
  2. VIGABATRIN [Suspect]
     Active Substance: VIGABATRIN
     Indication: Seizure

REACTIONS (2)
  - Drug ineffective [Recovering/Resolving]
  - Hypotonia [Recovering/Resolving]
